FAERS Safety Report 6512469-7 (Version None)
Quarter: 2009Q4

REPORT INFORMATION
  Report Type: 
  Country: None (occurrence: None)
  Receive Date: 20091222
  Receipt Date: 20091216
  Transmission Date: 20100525
  Serious: Yes (Hospitalization)
  Sender: FDA-Public Use
  Company Number: GB-ABBOTT-09P-167-0614957-00

PATIENT
  Age: 50 Year
  Sex: Female

DRUGS (1)
  1. HUMIRA [Suspect]
     Indication: SERONEGATIVE ARTHRITIS

REACTIONS (5)
  - AMNESIA [None]
  - ARTHRITIS [None]
  - BRAIN OEDEMA [None]
  - DEMYELINATION [None]
  - DISORIENTATION [None]
